FAERS Safety Report 14350861 (Version 1)
Quarter: 2018Q1

REPORT INFORMATION
  Report Type: Spontaneous
  Country: FR (occurrence: FR)
  Receive Date: 20180104
  Receipt Date: 20180104
  Transmission Date: 20180509
  Serious: Yes (Hospitalization, Other)
  Sender: FDA-Public Use
  Company Number: FR-PFIZER INC-2017555569

PATIENT
  Age: 47 Year
  Sex: Female

DRUGS (5)
  1. XANAX [Suspect]
     Active Substance: ALPRAZOLAM
     Dosage: 15 DF, UNK
     Route: 048
     Dates: start: 20171029, end: 20171029
  2. ATARAX [Suspect]
     Active Substance: HYDROXYZINE HYDROCHLORIDE
     Dosage: 30 DF, UNK
     Route: 048
     Dates: start: 20171029, end: 20171029
  3. ALCOHOL. [Suspect]
     Active Substance: ALCOHOL
     Dosage: NP
     Route: 048
     Dates: start: 20171029, end: 20171029
  4. NOCTAMIDE [Suspect]
     Active Substance: LORMETAZEPAM
     Dosage: NP
     Route: 048
     Dates: start: 20171029, end: 20171029
  5. STILNOX [Suspect]
     Active Substance: ZOLPIDEM TARTRATE
     Dosage: 30 DF, UNK
     Route: 048
     Dates: start: 20171029, end: 20171029

REACTIONS (3)
  - Coma [Recovered/Resolved]
  - Intentional overdose [Recovered/Resolved]
  - Intentional self-injury [Recovered/Resolved]

NARRATIVE: CASE EVENT DATE: 20171029
